FAERS Safety Report 4610864-4 (Version None)
Quarter: 2005Q1

REPORT INFORMATION
  Report Type: 
  Country: None (occurrence: None)
  Receive Date: 20050301
  Receipt Date: 20050131
  Transmission Date: 20050727
  Serious: No
  Sender: FDA-Public Use
  Company Number: MPS1-10318

PATIENT
  Age: 7 Year
  Sex: Male

DRUGS (3)
  1. ALDURAZYME [Suspect]
     Dosage: 0.25 MG/KG QWK IV
     Route: 042
     Dates: start: 20050128
  2. ALDURAZYME [Suspect]
     Dosage: 14.5 MG QWK IV
     Route: 042
     Dates: start: 20040401, end: 20041124
  3. BENADRYL [Concomitant]

REACTIONS (3)
  - FLUSHING [None]
  - PRURITUS [None]
  - URTICARIA [None]
